FAERS Safety Report 8594833 (Version 3)
Quarter: 2012Q4

REPORT INFORMATION
  Report Type: 
  Country: US (occurrence: US)
  Receive Date: 20120604
  Receipt Date: 20121008
  Transmission Date: 20130627
  Serious: Yes (Death, Hospitalization)
  Sender: FDA-Public Use
  Company Number: US-BAYER-2012-053209

PATIENT
  Age: 20 Year
  Sex: Female
  Weight: 99.77 kg

DRUGS (7)
  1. OCELLA [Suspect]
     Indication: MENSTRUATION IRREGULAR
     Dosage: UNK
     Dates: start: 20091210, end: 20100403
  2. PENTOBARBITAL [Concomitant]
  3. THIAMINE [Concomitant]
  4. KEPPRA [Concomitant]
  5. CEFTRIAXONE [Concomitant]
  6. VANCOMYCIN [Concomitant]
  7. ATIVAN [Concomitant]

REACTIONS (8)
  - Grand mal convulsion [Fatal]
  - Pulmonary embolism [Fatal]
  - Injury [Fatal]
  - Pain [None]
  - Emotional distress [None]
  - General physical health deterioration [None]
  - Anxiety [None]
  - Hepatitis acute [Fatal]
